FAERS Safety Report 5501799-3 (Version None)
Quarter: 2007Q4

REPORT INFORMATION
  Report Type: 
  Country: None (occurrence: None)
  Receive Date: 20071030
  Receipt Date: 20071023
  Transmission Date: 20080405
  Serious: Yes (Other)
  Sender: FDA-Public Use
  Company Number: US-JNJFOC-20071006521

PATIENT

DRUGS (1)
  1. LEVAQUIN [Suspect]
     Indication: PNEUMONIA
     Route: 042

REACTIONS (1)
  - EMBOLISM [None]
